FAERS Safety Report 15940779 (Version 10)
Quarter: 2019Q3

REPORT INFORMATION
  Report Type: Report from Study
  Country: US (occurrence: US)
  Receive Date: 20190208
  Receipt Date: 20190926
  Transmission Date: 20191004
  Serious: Yes (Disabling, Other)
  Sender: FDA-Public Use
  Company Number: US-MALLINCKRODT-T201901600

PATIENT
  Age: 65 Year
  Sex: Female
  Weight: 86 kg

DRUGS (10)
  1. GAVISCON [Suspect]
     Active Substance: ALUMINUM HYDROXIDE\MAGNESIUM CARBONATE
     Indication: FLATULENCE
     Dosage: UNK
     Route: 065
  2. PREDNISONE. [Suspect]
     Active Substance: PREDNISONE
     Indication: PRODUCT USED FOR UNKNOWN INDICATION
     Dosage: UNK
     Route: 065
  3. REPOSITORY CORTICOTROPIN INJECTION [Suspect]
     Active Substance: CORTICOTROPIN
     Indication: RENAL FAILURE
     Dosage: 80 UNITS/ML, EVERY 2 WEEKS
     Route: 058
     Dates: start: 20180318, end: 2018
  4. REPOSITORY CORTICOTROPIN INJECTION [Suspect]
     Active Substance: CORTICOTROPIN
     Dosage: EVERY 2 WEEKS
     Route: 065
     Dates: start: 201804
  5. REPOSITORY CORTICOTROPIN INJECTION [Suspect]
     Active Substance: CORTICOTROPIN
     Dosage: 80 UNITS/ML, EVERY 2 WEEKS
     Route: 058
     Dates: start: 20181030
  6. REPOSITORY CORTICOTROPIN INJECTION [Suspect]
     Active Substance: CORTICOTROPIN
     Dosage: 80 UNITS TWICE WEEKLY FOR 12 WEEKS
     Route: 058
     Dates: end: 20190809
  7. REPOSITORY CORTICOTROPIN INJECTION [Suspect]
     Active Substance: CORTICOTROPIN
     Dosage: 80 UNITS/ML, EVERY 2 WEEKS
     Route: 058
  8. REPOSITORY CORTICOTROPIN INJECTION [Suspect]
     Active Substance: CORTICOTROPIN
     Indication: SARCOIDOSIS
     Dosage: 80 UNITS/ML, TWICE A WEEK
     Route: 058
     Dates: start: 20180223, end: 2018
  9. REPOSITORY CORTICOTROPIN INJECTION [Suspect]
     Active Substance: CORTICOTROPIN
     Dosage: 80 UNITS/ML, EVERY 2 WEEKS
     Route: 058
  10. REPOSITORY CORTICOTROPIN INJECTION [Suspect]
     Active Substance: CORTICOTROPIN
     Dosage: 80 UNITS/ML, EVERY SUNDAY NIGHT
     Route: 058

REACTIONS (44)
  - Gastritis [Unknown]
  - Nausea [Not Recovered/Not Resolved]
  - Dizziness [Not Recovered/Not Resolved]
  - Dry mouth [Unknown]
  - Chest pain [Not Recovered/Not Resolved]
  - Blood calcium increased [Not Recovered/Not Resolved]
  - Memory impairment [Not Recovered/Not Resolved]
  - Weight increased [Unknown]
  - Depressed mood [Unknown]
  - Abdominal pain upper [Unknown]
  - Malaise [Unknown]
  - Heart rate decreased [Not Recovered/Not Resolved]
  - Ear infection [Unknown]
  - Headache [Not Recovered/Not Resolved]
  - Weight decreased [Unknown]
  - Blindness [Unknown]
  - Flatulence [Unknown]
  - Migraine with aura [Recovering/Resolving]
  - Motion sickness [Unknown]
  - Dyspnoea [Not Recovered/Not Resolved]
  - Metamorphopsia [Unknown]
  - Treatment noncompliance [Unknown]
  - Stargardt^s disease [Not Recovered/Not Resolved]
  - Abdominal discomfort [Not Recovered/Not Resolved]
  - Palpitations [Unknown]
  - Retching [Unknown]
  - Insomnia [Not Recovered/Not Resolved]
  - Disability [Unknown]
  - Disease progression [Not Recovered/Not Resolved]
  - Fatigue [Unknown]
  - Blood creatinine increased [Not Recovered/Not Resolved]
  - Vision blurred [Not Recovered/Not Resolved]
  - Anxiety [Unknown]
  - Therapeutic product effect delayed [Unknown]
  - Feeling abnormal [Unknown]
  - Asthenia [Unknown]
  - Pharyngitis [Unknown]
  - Product dose omission [Unknown]
  - Cholecystectomy [Unknown]
  - Blood pressure increased [Recovering/Resolving]
  - Dry eye [Recovering/Resolving]
  - Crying [Unknown]
  - Abdominal distension [Unknown]
  - Mood swings [Unknown]

NARRATIVE: CASE EVENT DATE: 201802
